FAERS Safety Report 14047881 (Version 2)
Quarter: 2017Q4

REPORT INFORMATION
  Report Type: Spontaneous
  Country: US (occurrence: US)
  Receive Date: 20171005
  Receipt Date: 20171012
  Transmission Date: 20180321
  Serious: Yes (Hospitalization)
  Sender: FDA-Public Use
  Company Number: US-ACTELION-A-NJ2017-160421

PATIENT
  Age: 52 Year
  Sex: Female
  Weight: 81.63 kg

DRUGS (8)
  1. VELETRI [Suspect]
     Active Substance: EPOPROSTENOL
     Indication: PULMONARY ARTERIAL HYPERTENSION
     Dosage: 8 NG/KG, PER MIN
     Route: 042
     Dates: start: 201705
  2. TORSEMIDE. [Concomitant]
     Active Substance: TORSEMIDE
     Dosage: 40 MG, BID
  3. ALDACTONE [Concomitant]
     Active Substance: SPIRONOLACTONE
     Dosage: 100 MG, QD
  4. FLONASE [Concomitant]
     Active Substance: FLUTICASONE PROPIONATE
     Dosage: 50 MG, UNK
     Route: 045
  5. ADCIRCA [Concomitant]
     Active Substance: TADALAFIL
     Dosage: 40 MG, UNK
     Dates: start: 201001
  6. WARFARIN [Concomitant]
     Active Substance: WARFARIN
     Dosage: 50 MG, QPM
  7. POTASSIUM [Concomitant]
     Active Substance: POTASSIUM
     Dosage: 40 MG, QD
  8. LETAIRIS [Concomitant]
     Active Substance: AMBRISENTAN
     Dosage: 10 MG, UNK
     Dates: start: 201105

REACTIONS (4)
  - Road traffic accident [Recovering/Resolving]
  - Head injury [Recovering/Resolving]
  - Ankle fracture [Recovering/Resolving]
  - Suture insertion [Recovering/Resolving]
